FAERS Safety Report 10165435 (Version 2)
Quarter: 2014Q2

REPORT INFORMATION
  Report Type: Spontaneous
  Country: US (occurrence: US)
  Receive Date: 20140510
  Receipt Date: 20140510
  Transmission Date: 20141212
  Serious: No
  Sender: FDA-Public Use
  Company Number: US-BRISTOL-MYERS SQUIBB COMPANY-19836782

PATIENT
  Age: 67 Year
  Sex: Female
  Weight: 117.91 kg

DRUGS (6)
  1. BYDUREON [Suspect]
     Indication: TYPE 2 DIABETES MELLITUS
     Dosage: PRESCRIPTION #6773552?EXP:JUN16
     Route: 058
     Dates: start: 2013
  2. ABILIFY [Suspect]
     Indication: BIPOLAR DISORDER
  3. BUSPAR [Suspect]
     Indication: BIPOLAR DISORDER
  4. EPITOL [Suspect]
     Indication: BIPOLAR DISORDER
  5. HUMALOG [Concomitant]
     Dosage: SLIDING SCALE FROM 15 UNIT TO 30 UNITS WITH EACH MEAL
     Route: 058
  6. LANTUS [Concomitant]
     Dosage: 50UNITS
     Route: 058

REACTIONS (5)
  - Nervousness [Unknown]
  - Anger [Unknown]
  - Crying [Unknown]
  - Injection site extravasation [Recovered/Resolved]
  - Injection site pain [Recovered/Resolved]
